FAERS Safety Report 5214325-3 (Version None)
Quarter: 2007Q1

REPORT INFORMATION
  Report Type: 
  Country: None (occurrence: None)
  Receive Date: 20070116
  Receipt Date: 20061211
  Transmission Date: 20070707
  Serious: Yes (Life-Threatening, Hospitalization)
  Sender: FDA-Public Use
  Company Number: 2006-00568

PATIENT
  Sex: Male

DRUGS (2)
  1. VELCADE [Suspect]
     Indication: WALDENSTROM'S MACROGLOBULINAEMIA
     Dosage: 1.30 MG/M2, IV BOLUS
     Route: 040
     Dates: start: 20060209, end: 20060216
  2. INSULIN [Concomitant]

REACTIONS (6)
  - DEHYDRATION [None]
  - HYPOXIA [None]
  - INTERSTITIAL LUNG DISEASE [None]
  - LUNG INFILTRATION [None]
  - PYREXIA [None]
  - RESPIRATORY DISTRESS [None]
